FAERS Safety Report 26004056 (Version 1)
Quarter: 2025Q4

REPORT INFORMATION
  Report Type: Spontaneous
  Country: US (occurrence: US)
  Receive Date: 20251106
  Receipt Date: 20251106
  Transmission Date: 20260117
  Serious: No
  Sender: ROCHE
  Company Number: US-ROCHE-10000426916

PATIENT
  Sex: Female

DRUGS (1)
  1. ERIVEDGE [Suspect]
     Active Substance: VISMODEGIB
     Indication: Basal cell carcinoma
     Dosage: 1 CAPSULE DAILY FOR ONE MONTH AND THEN 10 WEEKS OFF BEFORE RESTARTING.
     Route: 048
     Dates: start: 202507

REACTIONS (2)
  - Drug ineffective [Unknown]
  - No adverse event [Unknown]
